FAERS Safety Report 22320297 (Version 1)
Quarter: 2023Q2

REPORT INFORMATION
  Report Type: Spontaneous
  Country: US (occurrence: US)
  Receive Date: 20230515
  Receipt Date: 20230515
  Transmission Date: 20230721
  Serious: Yes (Hospitalization)
  Sender: FDA-Public Use
  Company Number: US-MYLANLABS-2023M1049359

PATIENT
  Age: 58 Year
  Sex: Male

DRUGS (6)
  1. FUROSEMIDE [Suspect]
     Active Substance: FUROSEMIDE
     Indication: Acute kidney injury
     Dosage: UNK
     Route: 042
  2. CALCIUM [Suspect]
     Active Substance: CALCIUM
     Indication: Acute kidney injury
     Dosage: UNK, LOW CALCIUM BATHS
     Route: 065
  3. CALCIUM GLUCONATE [Concomitant]
     Active Substance: CALCIUM GLUCONATE
     Indication: Acute kidney injury
     Dosage: UNK
     Route: 042
  4. VITAMIN D [Concomitant]
     Active Substance: VITAMIN D NOS
     Indication: Acute kidney injury
     Dosage: UNK
     Route: 065
  5. CALCITRIOL [Concomitant]
     Active Substance: CALCITRIOL
     Indication: Acute kidney injury
     Dosage: 0.25 MILLIGRAM, TID (THREE TIMES A WEEK)
     Route: 065
  6. CALCIUM ACETATE [Concomitant]
     Active Substance: CALCIUM ACETATE
     Indication: Acute kidney injury
     Dosage: UNK
     Route: 065

REACTIONS (1)
  - Drug ineffective [Unknown]
